FAERS Safety Report 4328317-X (Version None)
Quarter: 2004Q1

REPORT INFORMATION
  Report Type: 
  Country: None (occurrence: None)
  Receive Date: 20040325
  Receipt Date: 20031229
  Transmission Date: 20041129
  Serious: No
  Sender: FDA-Public Use
  Company Number: KII-2003-0006670

PATIENT
  Age: 79 Year
  Sex: Male

DRUGS (1)
  1. SPECTRACEF [Suspect]
     Indication: DRUG USE FOR UNKNOWN INDICATION

REACTIONS (1)
  - NAUSEA [None]
